FAERS Safety Report 7405743-3 (Version None)
Quarter: 2011Q2

REPORT INFORMATION
  Report Type: 
  Country: None (occurrence: None)
  Receive Date: 20110411
  Receipt Date: 20110406
  Transmission Date: 20111010
  Serious: Yes (Other)
  Sender: FDA-Public Use
  Company Number: VE-PFIZER INC-2011076343

PATIENT
  Age: 62 Year
  Sex: Female

DRUGS (2)
  1. LIPITOR [Suspect]
     Indication: HYPERCHOLESTEROLAEMIA
     Dosage: 80 MG, 1X/DAY
     Route: 048
     Dates: start: 20080101
  2. ASPIRIN [Concomitant]
     Indication: PERIPHERAL VASCULAR DISORDER
     Dosage: 81 MG, 1X/DAY
     Route: 048

REACTIONS (1)
  - VARICOSE ULCERATION [None]
